FAERS Safety Report 21335992 (Version 2)
Quarter: 2024Q1

REPORT INFORMATION
  Report Type: Spontaneous
  Country: ES (occurrence: ES)
  Receive Date: 20220915
  Receipt Date: 20240310
  Transmission Date: 20240409
  Serious: Yes (Other)
  Sender: FDA-Public Use
  Company Number: ES-AUROBINDO-AUR-APL-2022-036550

PATIENT
  Age: 57 Year
  Sex: Male

DRUGS (5)
  1. PEMETREXED [Suspect]
     Active Substance: PEMETREXED
     Indication: Non-small cell lung cancer metastatic
     Dosage: UNK
     Route: 065
     Dates: start: 202012
  2. CISPLATIN [Suspect]
     Active Substance: CISPLATIN
     Indication: Non-small cell lung cancer metastatic
     Dosage: UNK
     Route: 065
     Dates: start: 202012
  3. METHYLPREDNISOLONE [Suspect]
     Active Substance: METHYLPREDNISOLONE
     Indication: Secondary cerebellar degeneration
     Dosage: 1 GRAM, ONCE A DAY
     Route: 065
  4. OSIMERTINIB [Concomitant]
     Active Substance: OSIMERTINIB
     Indication: Non-small cell lung cancer metastatic
     Dosage: 80 MILLIGRAM, ONCE A DAY
     Route: 065
  5. AFATINIB [Concomitant]
     Active Substance: AFATINIB
     Indication: Non-small cell lung cancer metastatic
     Dosage: 40 MILLIGRAM, ONCE A DAY
     Route: 065
     Dates: start: 201604

REACTIONS (6)
  - Paraneoplastic syndrome [Unknown]
  - Drug ineffective [Unknown]
  - Somnolence [Recovering/Resolving]
  - Dysarthria [Unknown]
  - Ataxia [Unknown]
  - Condition aggravated [Unknown]
